FAERS Safety Report 23037386 (Version 1)
Quarter: 2023Q4

REPORT INFORMATION
  Report Type: Spontaneous
  Country: US (occurrence: US)
  Receive Date: 20231006
  Receipt Date: 20231006
  Transmission Date: 20240110
  Serious: No
  Sender: FDA-Public Use
  Company Number: US-INDIVIOR US-INDV-139167-2023

PATIENT

DRUGS (2)
  1. BUPRENORPHINE [Suspect]
     Active Substance: BUPRENORPHINE
     Indication: Back pain
     Dosage: UNK
     Route: 060
  2. BUPRENORPHINE\NALOXONE [Suspect]
     Active Substance: BUPRENORPHINE\NALOXONE
     Indication: Back pain
     Dosage: UNK
     Route: 060

REACTIONS (5)
  - Off label use [Unknown]
  - Bone loss [Not Recovered/Not Resolved]
  - Dysgeusia [Unknown]
  - Oral administration complication [Unknown]
  - Tooth disorder [Not Recovered/Not Resolved]
